FAERS Safety Report 20373458 (Version 1)
Quarter: 2022Q1

REPORT INFORMATION
  Report Type: Spontaneous
  Country: JP (occurrence: JP)
  Receive Date: 20220125
  Receipt Date: 20220125
  Transmission Date: 20220424
  Serious: Yes (Hospitalization, Other)
  Sender: FDA-Public Use
  Company Number: JP-ASTELLAS-2021JP025002

PATIENT
  Age: 80 Year
  Sex: Male

DRUGS (1)
  1. PADCEV [Suspect]
     Active Substance: ENFORTUMAB VEDOTIN-EJFV
     Indication: Bladder cancer
     Dosage: 63.8 MG/DAY, UNKNOWN FREQ.
     Route: 041
     Dates: start: 20211213, end: 20211220

REACTIONS (4)
  - Erythema [Unknown]
  - Conjunctival disorder [Unknown]
  - Pyrexia [Unknown]
  - Clonic convulsion [Unknown]

NARRATIVE: CASE EVENT DATE: 20211217
